FAERS Safety Report 7310214-9 (Version None)
Quarter: 2011Q1

REPORT INFORMATION
  Report Type: 
  Country: None (occurrence: None)
  Receive Date: 20110224
  Receipt Date: 20110218
  Transmission Date: 20110831
  Serious: No
  Sender: FDA-Public Use
  Company Number: US-PFIZER INC-2011036701

PATIENT
  Sex: Female
  Weight: 72.6 kg

DRUGS (6)
  1. NEURONTIN [Suspect]
     Indication: SKIN BURNING SENSATION
     Dosage: 400 MG, 4X/DAY
     Route: 048
  2. ACIPHEX [Concomitant]
     Dosage: 20 MG, 2X/DAY
  3. VITAMIN D [Concomitant]
     Dosage: UNK , 2X/DAY
  4. CALTRATE [Concomitant]
     Dosage: UNK
  5. AMITRIPTYLINE [Concomitant]
     Dosage: ONCE AT BEDTIME
  6. COREG [Concomitant]
     Indication: CARDIAC DISORDER
     Dosage: 25 MG, 1X/DAY

REACTIONS (1)
  - SKIN BURNING SENSATION [None]
